FAERS Safety Report 15721749 (Version 1)
Quarter: 2018Q4

REPORT INFORMATION
  Report Type: Spontaneous
  Country: US (occurrence: US)
  Receive Date: 20181214
  Receipt Date: 20181214
  Transmission Date: 20190205
  Serious: No
  Sender: FDA-Public Use
  Company Number: US-PFIZER INC-2018511136

PATIENT
  Age: 71 Year
  Sex: Female

DRUGS (1)
  1. GENOTROPIN MQ [Suspect]
     Active Substance: SOMATROPIN
     Dosage: UNK

REACTIONS (6)
  - Insulin-like growth factor increased [Unknown]
  - Blood thyroid stimulating hormone decreased [Unknown]
  - Complex regional pain syndrome [Unknown]
  - Insomnia [Unknown]
  - Weight increased [Unknown]
  - Pain [Not Recovered/Not Resolved]
